FAERS Safety Report 5194611-6 (Version None)
Quarter: 2006Q4

REPORT INFORMATION
  Report Type: 
  Country: None (occurrence: None)
  Receive Date: 20061229
  Receipt Date: 20061219
  Transmission Date: 20070319
  Serious: Yes (Other)
  Sender: FDA-Public Use
  Company Number: CA-JNJFOC-20061205781

PATIENT
  Age: 39 Year
  Sex: Male

DRUGS (3)
  1. LEVAQUIN [Suspect]
     Indication: PNEUMONIA
     Route: 042
     Dates: start: 20061214, end: 20061218
  2. METRONIDAZOLE [Concomitant]
     Route: 065
  3. CEFTAZIDIME [Concomitant]
     Route: 065

REACTIONS (3)
  - ABNORMAL BEHAVIOUR [None]
  - DELIRIUM [None]
  - HALLUCINATION [None]
